FAERS Safety Report 5633421-X (Version None)
Quarter: 2008Q1

REPORT INFORMATION
  Report Type: 
  Country: None (occurrence: None)
  Receive Date: 20080221
  Receipt Date: 20080130
  Transmission Date: 20080703
  Serious: Yes (Other)
  Sender: FDA-Public Use
  Company Number: JP-ROCHE-545321

PATIENT
  Age: 9 Year
  Sex: Male

DRUGS (4)
  1. TAMIFLU [Suspect]
     Indication: INFLUENZA
     Dosage: FORM: DRY SYRUP.
     Route: 048
     Dates: start: 20080129, end: 20080129
  2. MUCODYNE [Suspect]
     Indication: DRUG USE FOR UNKNOWN INDICATION
     Dosage: FORMULATION: ORAL FORMULATION (NOT OTHERWISE SPECIFIED).
     Route: 048
  3. PYRINAZIN [Suspect]
     Indication: DRUG USE FOR UNKNOWN INDICATION
     Route: 048
  4. SODIUM ALGINATE [Suspect]
     Indication: DRUG USE FOR UNKNOWN INDICATION
     Route: 048

REACTIONS (1)
  - ABNORMAL BEHAVIOUR [None]
